FAERS Safety Report 18912779 (Version 1)
Quarter: 2021Q1

REPORT INFORMATION
  Report Type: Spontaneous
  Country: IT (occurrence: IT)
  Receive Date: 20210219
  Receipt Date: 20210219
  Transmission Date: 20210420
  Serious: Yes (Other)
  Sender: FDA-Public Use
  Company Number: IT-ALKEM LABORATORIES LIMITED-IT-ALKEM-2020-01193

PATIENT
  Age: 36 Year
  Sex: Female

DRUGS (2)
  1. LINEZOLID. [Suspect]
     Active Substance: LINEZOLID
     Indication: ENCEPHALITIS
     Dosage: 600 MILLIGRAM, BID
     Route: 042
     Dates: start: 201811
  2. LINEZOLID. [Suspect]
     Active Substance: LINEZOLID
     Dosage: 600 MILLIGRAM, TID
     Route: 042
     Dates: start: 2018

REACTIONS (2)
  - Drug level increased [Recovered/Resolved]
  - Thrombocytopenia [Unknown]
